FAERS Safety Report 11350752 (Version 1)
Quarter: 2015Q3

REPORT INFORMATION
  Report Type: Spontaneous
  Country: US (occurrence: None)
  Receive Date: 20150709
  Receipt Date: 20150709
  Transmission Date: 20151125
  Serious: Yes (Hospitalization, Other)
  Sender: FDA-Public Use
  Company Number: PHEH2014US012878

PATIENT
  Age: 64 Year
  Sex: Female

DRUGS (5)
  1. GLEEVEC [Suspect]
     Active Substance: IMATINIB MESYLATE
  2. VITAMIN B (VITAMIN B COMPLEX) [Concomitant]
  3. METFORMIN [Concomitant]
     Active Substance: METFORMIN HYDROCHLORIDE
  4. TASIGNA [Concomitant]
     Active Substance: NILOTINIB
  5. LISINOPRIL (LISINOPRIL) [Concomitant]
     Active Substance: LISINOPRIL

REACTIONS (7)
  - Candida infection [None]
  - Epistaxis [None]
  - Pneumonia [None]
  - Therapeutic response decreased [None]
  - Haemoglobin decreased [None]
  - Neoplasm recurrence [None]
  - Loss of consciousness [None]

NARRATIVE: CASE EVENT DATE: 2009
